FAERS Safety Report 7481787-0 (Version None)
Quarter: 2011Q2

REPORT INFORMATION
  Report Type: 
  Country: None (occurrence: None)
  Receive Date: 20110516
  Receipt Date: 20110502
  Transmission Date: 20111010
  Serious: Yes (Hospitalization, Disabling)
  Sender: FDA-Public Use
  Company Number: DE-CELGENEUS-AX244-10-0678

PATIENT
  Age: 82 Year
  Sex: Female
  Weight: 57 kg

DRUGS (3)
  1. CIPROFLOXACIN [Concomitant]
     Route: 065
  2. ABRAXANE [Suspect]
     Indication: BREAST CANCER
     Dates: start: 20101025
  3. XELODA [Suspect]
     Indication: BREAST CANCER
     Route: 065

REACTIONS (1)
  - GASTROINTESTINAL INFECTION [None]
